FAERS Safety Report 13416638 (Version 1)
Quarter: 2017Q2

REPORT INFORMATION
  Report Type: Spontaneous
  Country: IT (occurrence: IT)
  Receive Date: 20170406
  Receipt Date: 20170406
  Transmission Date: 20170830
  Serious: Yes (Hospitalization)
  Sender: FDA-Public Use
  Company Number: IT-INGENUS PHARMACEUTICALS NJ, LLC-ING201704-000176

PATIENT
  Age: 60 Year
  Sex: Male

DRUGS (5)
  1. CARISOPRODOL AND ASPIRIN [Suspect]
     Active Substance: ASPIRIN\CARISOPRODOL
  2. HYDROXYUREA. [Concomitant]
     Active Substance: HYDROXYUREA
     Indication: POLYCYTHAEMIA VERA
  3. HEPARIN [Suspect]
     Active Substance: HEPARIN SODIUM
  4. WARFARIN [Concomitant]
     Active Substance: WARFARIN
     Indication: POLYCYTHAEMIA VERA
  5. FONDAPARINUX [Concomitant]
     Active Substance: FONDAPARINUX

REACTIONS (4)
  - Shock haemorrhagic [Unknown]
  - Melaena [Unknown]
  - Incision site haemorrhage [Unknown]
  - Arterial haemorrhage [Unknown]
